FAERS Safety Report 4377255-5 (Version None)
Quarter: 2004Q2

REPORT INFORMATION
  Report Type: 
  Country: None (occurrence: None)
  Receive Date: 20040614
  Receipt Date: 20040614
  Transmission Date: 20050107
  Serious: Yes (Life-Threatening, Hospitalization)
  Sender: FDA-Public Use
  Company Number: None

PATIENT
  Age: 60 Year
  Sex: Male
  Weight: 83 kg

DRUGS (1)
  1. TAXOL [Suspect]
     Indication: NON-SMALL CELL LUNG CANCER STAGE IV
     Dosage: 350MG INTRAVENOUS
     Route: 042
     Dates: start: 20040512, end: 20040512

REACTIONS (8)
  - AMNESIA [None]
  - BLOOD PRESSURE DIASTOLIC DECREASED [None]
  - COMA [None]
  - ELECTROCARDIOGRAM T WAVE INVERSION [None]
  - MYOCARDIAL INFARCTION [None]
  - NAUSEA [None]
  - RESPIRATORY ARREST [None]
  - SKIN DISCOLOURATION [None]
